FAERS Safety Report 4931472-1 (Version None)
Quarter: 2006Q1

REPORT INFORMATION
  Report Type: 
  Country: None (occurrence: None)
  Receive Date: 20060228
  Receipt Date: 20060215
  Transmission Date: 20060701
  Serious: Yes (Other)
  Sender: FDA-Public Use
  Company Number: 2006024434

PATIENT
  Sex: Male
  Weight: 97.5234 kg

DRUGS (2)
  1. VIAGRA [Suspect]
     Indication: ERECTILE DYSFUNCTION
     Dosage: 100 MG (100 MG), ORAL
     Route: 048
  2. SYNTHROID [Concomitant]

REACTIONS (4)
  - DYSPNOEA [None]
  - MALAISE [None]
  - PROSTATE EXAMINATION ABNORMAL [None]
  - TRISMUS [None]
